FAERS Safety Report 5098995-9 (Version None)
Quarter: 2006Q3

REPORT INFORMATION
  Report Type: 
  Country: None (occurrence: None)
  Receive Date: 20060731
  Receipt Date: 20051020
  Transmission Date: 20061208
  Serious: Yes (Life-Threatening)
  Sender: FDA-Public Use
  Company Number: US-2005-013131

PATIENT
  Age: 53 Year
  Sex: Male
  Weight: 90.7 kg

DRUGS (2)
  1. MAGNEVIST [Suspect]
     Indication: NUCLEAR MAGNETIC RESONANCE IMAGING BRAIN
     Dosage: 20 ML, 1 DOSE, INTRAVENOUS
     Route: 042
     Dates: start: 20050708, end: 20050708
  2. RITALIN (METHYLPHENIDATE HYROCHLORIDE) [Concomitant]

REACTIONS (5)
  - BURNING SENSATION [None]
  - CHEST DISCOMFORT [None]
  - DYSGEUSIA [None]
  - MUSCLE RIGIDITY [None]
  - SYNCOPE VASOVAGAL [None]
